FAERS Safety Report 14892062 (Version 1)
Quarter: 2018Q2

REPORT INFORMATION
  Report Type: Report from Study
  Country: CO (occurrence: CO)
  Receive Date: 20180514
  Receipt Date: 20180514
  Transmission Date: 20180711
  Serious: Yes (Other)
  Sender: FDA-Public Use
  Company Number: CO-UCBSA-2018019875

PATIENT
  Age: 13 Year
  Sex: Male
  Weight: 52 kg

DRUGS (2)
  1. LACOSAMIDE. [Suspect]
     Active Substance: LACOSAMIDE
     Indication: EPILEPSY
     Dosage: 100 MG, 4X/DAY (QID)
     Route: 048
     Dates: start: 20180210
  2. LACOSAMIDE. [Suspect]
     Active Substance: LACOSAMIDE
     Indication: EPILEPSY
     Dosage: 100 MG, 4X/DAY (QID)
     Route: 048
     Dates: start: 20160310, end: 20180209

REACTIONS (4)
  - Seizure [Not Recovered/Not Resolved]
  - Off label use [Unknown]
  - Epistaxis [Recovered/Resolved]
  - Depression [Recovering/Resolving]

NARRATIVE: CASE EVENT DATE: 20160310
